FAERS Safety Report 18282924 (Version 1)
Quarter: 2020Q3

REPORT INFORMATION
  Report Type: Report from Study
  Country: US (occurrence: US)
  Receive Date: 20200918
  Receipt Date: 20200918
  Transmission Date: 20201103
  Serious: Yes (Death)
  Sender: FDA-Public Use
  Company Number: US-MYLANLABS-2020M1079757

PATIENT
  Sex: Female

DRUGS (19)
  1. ETOPOSIDE. [Suspect]
     Active Substance: ETOPOSIDE
     Dosage: 100 MILLIGRAM/SQ. METER, DAY 2: OVER 30 MINUTES (IN EMACO REGIMEN)
     Route: 042
  2. DACTINOMYCIN [Suspect]
     Active Substance: DACTINOMYCIN
     Dosage: 0.5 MILLIGRAM, DAY 2 (IN EMACO REGIMEN)
     Route: 040
  3. PACLITAXEL. [Suspect]
     Active Substance: PACLITAXEL
     Dosage: IN TP/TE REGIMEN
     Route: 065
  4. DACTINOMYCIN [Suspect]
     Active Substance: DACTINOMYCIN
     Dosage: IN EMAEP REGIMEN
     Route: 065
  5. METHOTREXATE. [Suspect]
     Active Substance: METHOTREXATE
     Indication: GESTATIONAL TROPHOBLASTIC TUMOUR
     Dosage: 100 MILLIGRAM/SQ. METER, DAY 1: OVER 30 MINUTES (IN EMACO REGIMEN)
     Route: 042
  6. CYCLOPHOSPHAMIDE. [Suspect]
     Active Substance: CYCLOPHOSPHAMIDE
     Indication: GESTATIONAL TROPHOBLASTIC TUMOUR
     Dosage: 600 MILLIGRAM/SQ. METER, DAY 8: OVER 30 MINUTES (IN EMACO REGIMEN)
     Route: 042
  7. VINCRISTINE [Suspect]
     Active Substance: VINCRISTINE
     Indication: GESTATIONAL TROPHOBLASTIC TUMOUR
     Dosage: 1 MILLIGRAM/SQ. METER, DAY 8 (IN EMACO REGIMEN)
     Route: 040
  8. ETOPOSIDE. [Suspect]
     Active Substance: ETOPOSIDE
     Indication: GESTATIONAL TROPHOBLASTIC TUMOUR
     Dosage: 100 MILLIGRAM/SQ. METER, DAY 1: OVER 30 MINUTES (IN EMACO REGIMEN)
     Route: 042
  9. CISPLATIN. [Suspect]
     Active Substance: CISPLATIN
     Dosage: IN TP/TE REGIMEN
     Route: 065
  10. ETOPOSIDE. [Suspect]
     Active Substance: ETOPOSIDE
     Indication: GESTATIONAL TROPHOBLASTIC TUMOUR
     Dosage: IN EMAEP REGIMEN
     Route: 065
  11. ETOPOSIDE. [Suspect]
     Active Substance: ETOPOSIDE
     Dosage: IN TP/TE REGIMEN
     Route: 065
  12. METHOTREXATE. [Suspect]
     Active Substance: METHOTREXATE
     Indication: GESTATIONAL TROPHOBLASTIC TUMOUR
     Dosage: IN EMAEP REGIMEN
     Route: 065
  13. PACLITAXEL. [Suspect]
     Active Substance: PACLITAXEL
     Indication: GESTATIONAL TROPHOBLASTIC TUMOUR
     Dosage: UNK
     Route: 065
  14. CARBOPLATIN. [Suspect]
     Active Substance: CARBOPLATIN
     Indication: GESTATIONAL TROPHOBLASTIC TUMOUR
     Route: 065
  15. CISPLATIN. [Suspect]
     Active Substance: CISPLATIN
     Indication: GESTATIONAL TROPHOBLASTIC TUMOUR
     Dosage: IN EMAEP REGIMEN
     Route: 065
  16. IFOSFAMIDE. [Suspect]
     Active Substance: IFOSFAMIDE
     Indication: GESTATIONAL TROPHOBLASTIC TUMOUR
     Route: 065
  17. METHOTREXATE. [Suspect]
     Active Substance: METHOTREXATE
     Dosage: 200 MILLIGRAM/SQ. METER, OVER 12 HOURS (IN EMACO REGIMEN)
     Route: 042
  18. FOLINIC ACID [Suspect]
     Active Substance: LEUCOVORIN
     Indication: GESTATIONAL TROPHOBLASTIC TUMOUR
     Dosage: 15 MG, BID;DAY 2: EVERY 12 HOURS FOR 4 DOSES...
     Route: 065
  19. DACTINOMYCIN [Suspect]
     Active Substance: DACTINOMYCIN
     Indication: GESTATIONAL TROPHOBLASTIC TUMOUR
     Dosage: 0.5 MILLIGRAM, DAY 1 (IN EMACO REGIMEN)
     Route: 040

REACTIONS (1)
  - Drug ineffective [Fatal]
